FAERS Safety Report 8313767-7 (Version None)
Quarter: 2012Q2

REPORT INFORMATION
  Report Type: 
  Country: None (occurrence: None)
  Receive Date: 20120426
  Receipt Date: 20110808
  Transmission Date: 20120825
  Serious: Yes (Other)
  Sender: FDA-Public Use
  Company Number: US-TEVA-US020409

PATIENT
  Age: 36 Year
  Sex: Male

DRUGS (2)
  1. PROZAC [Concomitant]
     Indication: DEPRESSION
     Dosage: 80 MILLIGRAM;
     Route: 065
  2. PROVIGIL [Suspect]
     Dosage: 100 MILLIGRAM;
     Route: 048

REACTIONS (1)
  - HYPOMANIA [None]
